FAERS Safety Report 9224194 (Version 1)
Quarter: 2013Q1

REPORT INFORMATION
  Report Type: Spontaneous
  Country: US (occurrence: None)
  Receive Date: 20120914
  Receipt Date: 20120914
  Transmission Date: 20140127
  Serious: Yes (Hospitalization, Other)
  Sender: FDA-Public Use
  Company Number: JPI-P-019589

PATIENT
  Age: 50 Year
  Sex: Female
  Weight: 65.77 kg

DRUGS (7)
  1. XYREM ?(500 MILLIGRAM/MILLILITERS, SOLUTION)(SODIUM OXYBATE) [Suspect]
     Indication: NARCOLEPSY
     Dosage: (UNKNOWN), ORAL
     Route: 048
     Dates: start: 20101206
  2. LAMOTRIGINE [Suspect]
     Indication: DEPRESSION
     Route: 048
     Dates: end: 20111031
  3. SERTRALINE HYDROCHLORIDE [Concomitant]
  4. DULOXETINE HYDROCHLORIDE [Concomitant]
  5. OMEPRAZOLE [Concomitant]
  6. METHYLFOLATE/METHYLCOBALAMIN/N-ACETYLCYSTEINE (CERAFOLIN NAC) [Concomitant]
  7. AMPHETAMINE, DEXTROAMPHETAMINE MIXED SALTS [Concomitant]

REACTIONS (3)
  - Pain [None]
  - Drug hypersensitivity [None]
  - Hypotension [None]
